FAERS Safety Report 15020562 (Version 1)
Quarter: 2018Q2

REPORT INFORMATION
  Report Type: Report from Study
  Country: IT (occurrence: IT)
  Receive Date: 20180618
  Receipt Date: 20180618
  Transmission Date: 20180711
  Serious: Yes (Hospitalization)
  Sender: FDA-Public Use
  Company Number: IT-TEVA-2018-IT-904248

PATIENT
  Age: 65 Year
  Sex: Male

DRUGS (11)
  1. LEVETIRACETAM. [Interacting]
     Active Substance: LEVETIRACETAM
     Route: 065
  2. ATENOLOL. [Interacting]
     Active Substance: ATENOLOL
     Route: 065
  3. LISINOPRIL AND HYDROCHLOROTHIAZIDE [Interacting]
     Active Substance: HYDROCHLOROTHIAZIDE\LISINOPRIL
     Route: 065
  4. INSULIN [Interacting]
     Active Substance: INSULIN NOS
     Route: 065
  5. ROSUVASTATIN. [Interacting]
     Active Substance: ROSUVASTATIN
     Route: 065
  6. CARBAMAZEPINE. [Suspect]
     Active Substance: CARBAMAZEPINE
     Route: 065
  7. LOSARTAN. [Interacting]
     Active Substance: LOSARTAN
     Route: 065
  8. TAMSULOSIN [Interacting]
     Active Substance: TAMSULOSIN
     Route: 065
  9. AMLODIPINE [Interacting]
     Active Substance: AMLODIPINE BESYLATE
     Route: 065
  10. METFORMIN [Interacting]
     Active Substance: METFORMIN HYDROCHLORIDE
     Route: 065
  11. INFLUENZA H1N1 VACCINE NOS [Interacting]
     Active Substance: INFLUENZA VIRUS VACCINE, SWINE
     Indication: IMMUNISATION
     Route: 065

REACTIONS (9)
  - Paraplegia [Unknown]
  - Paraesthesia [Unknown]
  - Respiratory failure [Unknown]
  - Toxicity to various agents [Unknown]
  - Coordination abnormal [Unknown]
  - Drug interaction [Unknown]
  - Loss of personal independence in daily activities [Unknown]
  - Mobility decreased [Unknown]
  - Guillain-Barre syndrome [Unknown]
